FAERS Safety Report 4855029-6 (Version None)
Quarter: 2005Q4

REPORT INFORMATION
  Report Type: 
  Country: None (occurrence: None)
  Receive Date: 20051214
  Receipt Date: 20051201
  Transmission Date: 20060501
  Serious: Yes (Other)
  Sender: FDA-Public Use
  Company Number: 2005164581

PATIENT
  Age: 48 Year
  Sex: Male
  Weight: 80 kg

DRUGS (2)
  1. LYRICA [Suspect]
     Indication: PAIN
     Dosage: (25 MG,), ORAL
     Route: 048
  2. IBUPROFEN [Concomitant]

REACTIONS (3)
  - DIARRHOEA [None]
  - HYPERSENSITIVITY [None]
  - VOMITING [None]
